FAERS Safety Report 15675682 (Version 1)
Quarter: 2018Q4

REPORT INFORMATION
  Report Type: Spontaneous
  Country: PE (occurrence: PE)
  Receive Date: 20181130
  Receipt Date: 20181130
  Transmission Date: 20190205
  Serious: Yes (Other)
  Sender: FDA-Public Use
  Company Number: PE-LPDUSPRD-20182255

PATIENT
  Age: 39 Year
  Sex: Female

DRUGS (1)
  1. FERINJECT [Suspect]
     Active Substance: FERRIC CARBOXYMALTOSE
     Dosage: 2 VIALS (1000 MG)
     Route: 041
     Dates: start: 20181109, end: 20181109

REACTIONS (4)
  - Respiratory distress [Unknown]
  - Rash [Unknown]
  - Maternal exposure during pregnancy [Unknown]
  - Uterine contractions during pregnancy [Unknown]

NARRATIVE: CASE EVENT DATE: 20181109
